FAERS Safety Report 13425107 (Version 1)
Quarter: 2017Q2

REPORT INFORMATION
  Report Type: Spontaneous
  Country: US (occurrence: US)
  Receive Date: 20170411
  Receipt Date: 20170411
  Transmission Date: 20170830
  Serious: Yes (Other)
  Sender: FDA-Public Use
  Company Number: US-ROCHE-1904788

PATIENT
  Age: 9 Year
  Sex: Male
  Weight: 31.78 kg

DRUGS (1)
  1. TAMIFLU [Suspect]
     Active Substance: OSELTAMIVIR PHOSPHATE
     Indication: INFLUENZA
     Route: 048
     Dates: start: 20170308, end: 20170308

REACTIONS (6)
  - Hallucination [Recovered/Resolved]
  - Amnesia [Recovered/Resolved]
  - Headache [Unknown]
  - Tremor [Recovered/Resolved]
  - Confusional state [Recovered/Resolved]
  - Eye disorder [Recovered/Resolved]

NARRATIVE: CASE EVENT DATE: 20170308
